FAERS Safety Report 20211255 (Version 1)
Quarter: 2021Q4

REPORT INFORMATION
  Report Type: Spontaneous
  Country: US (occurrence: None)
  Receive Date: 20211220
  Receipt Date: 20211220
  Transmission Date: 20220303
  Serious: Yes (Other)
  Sender: FDA-Public Use
  Company Number: None

PATIENT

DRUGS (1)
  1. TYLENOL [Suspect]
     Active Substance: ACETAMINOPHEN

REACTIONS (8)
  - Nasopharyngitis [None]
  - Cough [None]
  - Oropharyngeal pain [None]
  - Dry throat [None]
  - Pyrexia [None]
  - Pruritus [None]
  - Disease recurrence [None]
  - Decreased activity [None]
